FAERS Safety Report 7430145-3 (Version None)
Quarter: 2011Q2

REPORT INFORMATION
  Report Type: 
  Country: None (occurrence: None)
  Receive Date: 20110421
  Receipt Date: 20100630
  Transmission Date: 20111010
  Serious: No
  Sender: FDA-Public Use
  Company Number: US-ASTRAZENECA-2010SE30725

PATIENT
  Age: 63 Year
  Sex: Male
  Weight: 98.9 kg

DRUGS (6)
  1. ALTACE [Suspect]
     Route: 065
     Dates: start: 20100401
  2. GLIPIZIDE [Concomitant]
  3. TOPROL-XL [Suspect]
     Indication: HYPERTENSION
     Route: 048
  4. TOPROL-XL [Suspect]
     Route: 048
     Dates: start: 20100401
  5. ALTACE [Suspect]
     Indication: RENAL DISORDER
     Route: 065
  6. METFORMIN [Concomitant]

REACTIONS (2)
  - HYPERTENSION [None]
  - DRUG INEFFECTIVE [None]
